FAERS Safety Report 7558063-0 (Version None)
Quarter: 2011Q2

REPORT INFORMATION
  Report Type: 
  Country: None (occurrence: None)
  Receive Date: 20110620
  Receipt Date: 20110609
  Transmission Date: 20111010
  Serious: Yes (Life-Threatening, Hospitalization)
  Sender: FDA-Public Use
  Company Number: UA-UCBSA-8047694

PATIENT
  Sex: Female
  Weight: 62.3 kg

DRUGS (6)
  1. FENIGIDIN [Concomitant]
     Indication: HYPERTENSION
     Route: 048
     Dates: start: 20030101
  2. CERTOLIZUMAB PEGOL [Suspect]
     Indication: RHEUMATOID ARTHRITIS
     Route: 058
     Dates: start: 20051228, end: 20060614
  3. METHOTREXATE [Concomitant]
     Indication: RHEUMATOID ARTHRITIS
     Route: 048
     Dates: start: 20010101
  4. CERTOLIZUMAB PEGOL [Suspect]
     Route: 058
     Dates: start: 20060614, end: 20090603
  5. NIMESIL [Concomitant]
     Indication: RHEUMATOID ARTHRITIS
     Route: 048
     Dates: start: 20051028
  6. OMER [Concomitant]
     Indication: ULCER
     Route: 048
     Dates: start: 20030603

REACTIONS (2)
  - MENINGITIS TUBERCULOUS [None]
  - DISSEMINATED TUBERCULOSIS [None]
